FAERS Safety Report 14601214 (Version 7)
Quarter: 2018Q2

REPORT INFORMATION
  Report Type: Spontaneous
  Country: JP (occurrence: JP)
  Receive Date: 20180305
  Receipt Date: 20180502
  Transmission Date: 20180711
  Serious: Yes (Death, Other)
  Sender: FDA-Public Use
  Company Number: JP-BEH-2018088481

PATIENT
  Age: 66 Year
  Sex: Female
  Weight: 50 kg

DRUGS (2)
  1. ALBUMINAR-25 [Suspect]
     Active Substance: ALBUMIN HUMAN
     Indication: HYPOALBUMINAEMIA
     Dosage: 50 ML, SINGLE
     Route: 042
     Dates: start: 20180226, end: 20180226
  2. AXITINIB [Concomitant]
     Active Substance: AXITINIB
     Indication: METASTASES TO LUNG
     Route: 065

REACTIONS (2)
  - Lymphangiosis carcinomatosa [Fatal]
  - Respiratory failure [Fatal]

NARRATIVE: CASE EVENT DATE: 20180226
